FAERS Safety Report 12200171 (Version 1)
Quarter: 2016Q1

REPORT INFORMATION
  Report Type: Spontaneous
  Country: MX (occurrence: MX)
  Receive Date: 20160322
  Receipt Date: 20160322
  Transmission Date: 20160526
  Serious: Yes (Hospitalization, Other)
  Sender: FDA-Public Use
  Company Number: MX-SA-2016SA057263

PATIENT
  Age: 66 Year
  Sex: Female
  Weight: 67 kg

DRUGS (6)
  1. VIVITAR [Concomitant]
     Route: 048
     Dates: start: 2014
  2. VYTORIN [Concomitant]
     Active Substance: EZETIMIBE\SIMVASTATIN
     Indication: HYPERCHOLESTEROLAEMIA
     Route: 048
     Dates: start: 1996
  3. AVAPRO [Suspect]
     Active Substance: IRBESARTAN
     Indication: HYPERTENSION
     Route: 048
     Dates: start: 2011, end: 201602
  4. EVIPRESS [Concomitant]
     Indication: HYPERTENSION
     Route: 048
     Dates: start: 2011
  5. ASPIRIN PROTECT [Concomitant]
     Active Substance: ASPIRIN
     Route: 048
     Dates: start: 2011
  6. AVAPRO [Suspect]
     Active Substance: IRBESARTAN
     Indication: HYPERTENSION
     Route: 048
     Dates: start: 201602

REACTIONS (4)
  - Arrhythmia [Not Recovered/Not Resolved]
  - Hypertension [Not Recovered/Not Resolved]
  - Breast cancer [Not Recovered/Not Resolved]
  - Upper respiratory tract infection [Not Recovered/Not Resolved]

NARRATIVE: CASE EVENT DATE: 2011
